FAERS Safety Report 24340950 (Version 1)
Quarter: 2024Q3

REPORT INFORMATION
  Report Type: Spontaneous
  Country: GB (occurrence: GB)
  Receive Date: 20240919
  Receipt Date: 20240919
  Transmission Date: 20241016
  Serious: Yes (Hospitalization)
  Sender: FERRING
  Company Number: GB-FERRINGPH-2024FE05224

PATIENT

DRUGS (1)
  1. DDAVP [Suspect]
     Active Substance: DESMOPRESSIN ACETATE
     Indication: Diabetes insipidus
     Dosage: 0.1 MG HALF THE TABLET IN THE MORNING AND HALF IN THE EVENING.
     Route: 065

REACTIONS (2)
  - Blood sodium increased [Unknown]
  - Wrong technique in product usage process [Unknown]
